FAERS Safety Report 5208002-2 (Version None)
Quarter: 2007Q1

REPORT INFORMATION
  Report Type: 
  Country: None (occurrence: None)
  Receive Date: 20070115
  Receipt Date: 20070102
  Transmission Date: 20070707
  Serious: Yes (Other)
  Sender: FDA-Public Use
  Company Number: PHFR2007GB00454

PATIENT
  Age: 67 Year
  Sex: Male

DRUGS (7)
  1. ZOLEDRONIC ACID [Suspect]
     Route: 065
  2. ADRIAMYCIN PFS [Concomitant]
     Route: 065
  3. CYCLOPHOSPHAMIDE [Concomitant]
     Route: 065
  4. DEXAMETHASONE [Concomitant]
     Route: 065
  5. FLUOROURACIL [Concomitant]
     Route: 065
  6. MEGESTROL ACETATE [Concomitant]
     Route: 065
  7. THALIDOMIDE [Concomitant]
     Route: 065

REACTIONS (2)
  - OSTEOMYELITIS CHRONIC [None]
  - OSTEONECROSIS [None]
